FAERS Safety Report 19256588 (Version 2)
Quarter: 2021Q2

REPORT INFORMATION
  Report Type: Report from Study
  Country: BR (occurrence: BR)
  Receive Date: 20210513
  Receipt Date: 20210519
  Transmission Date: 20210717
  Serious: Yes (Hospitalization)
  Sender: FDA-Public Use
  Company Number: BR-EMD SERONO-9237015

PATIENT
  Age: 38 Year
  Sex: Female

DRUGS (2)
  1. REBIF [Suspect]
     Active Substance: INTERFERON BETA-1A
     Indication: RELAPSING-REMITTING MULTIPLE SCLEROSIS
     Dates: start: 20100107, end: 20110510
  2. REBIF [Suspect]
     Active Substance: INTERFERON BETA-1A
     Route: 058
     Dates: start: 20120131, end: 20200701

REACTIONS (3)
  - Treatment noncompliance [Unknown]
  - Therapeutic response decreased [Unknown]
  - Vogt-Koyanagi-Harada disease [Recovering/Resolving]

NARRATIVE: CASE EVENT DATE: 201105
